FAERS Safety Report 9144591 (Version 2)
Quarter: 2013Q4

REPORT INFORMATION
  Report Type: Spontaneous
  Country: FR (occurrence: FR)
  Receive Date: 20130306
  Receipt Date: 20131220
  Transmission Date: 20140711
  Serious: Yes (Hospitalization)
  Sender: FDA-Public Use
  Company Number: FR-TEVA-389319ISR

PATIENT
  Age: 50 Year
  Sex: Female

DRUGS (5)
  1. ESTREVA [Suspect]
     Indication: HORMONE REPLACEMENT THERAPY
     Dosage: 2 PRESSIONS FROM DAY 21 TO DAY 28
     Route: 061
     Dates: start: 1999, end: 2008
  2. ANDROCUR [Suspect]
     Indication: HORMONE REPLACEMENT THERAPY
     Dosage: 25 MILLIGRAM DAILY; 0.5 TABLET FROM DAY 21 TO DAY 28 OF EACH CYCLE
     Route: 048
     Dates: start: 199801, end: 2008
  3. ANDROCUR [Suspect]
     Dosage: 25 MILLIGRAM DAILY; 25 MG FROM DAY 10 TO DAY 21 OF EACH CYCLE
     Route: 048
     Dates: start: 199805, end: 1999
  4. ANDROCUR [Suspect]
     Dosage: 50 MILLIGRAM DAILY; 50 MG FROM DAY 10 TO DAY 21 OF EACH CYCLE
     Route: 048
     Dates: start: 1999, end: 2008
  5. OESCLIM [Suspect]
     Indication: HORMONE REPLACEMENT THERAPY
     Route: 061
     Dates: start: 199704, end: 1999

REACTIONS (1)
  - Meningioma [Recovered/Resolved with Sequelae]
